FAERS Safety Report 8566060-1 (Version None)
Quarter: 2012Q3

REPORT INFORMATION
  Report Type: 
  Country: None (occurrence: None)
  Receive Date: 20120803
  Receipt Date: 20120801
  Transmission Date: 20120928
  Serious: Yes (Other)
  Sender: FDA-Public Use
  Company Number: US-MDL-2012ML000073

PATIENT
  Age: 4 Month
  Sex: Female

DRUGS (1)
  1. BUPRENORPHINE [Suspect]

REACTIONS (12)
  - YAWNING [None]
  - MYOCLONUS [None]
  - INSOMNIA [None]
  - DRUG WITHDRAWAL SYNDROME [None]
  - HYPERHIDROSIS [None]
  - TREMOR [None]
  - EXPOSURE DURING BREAST FEEDING [None]
  - AGITATION [None]
  - PSYCHOMOTOR HYPERACTIVITY [None]
  - MYDRIASIS [None]
  - FOETAL EXPOSURE DURING PREGNANCY [None]
  - SNEEZING [None]
